FAERS Safety Report 4565117-X (Version None)
Quarter: 2005Q1

REPORT INFORMATION
  Report Type: 
  Country: None (occurrence: None)
  Receive Date: 20050110
  Receipt Date: 20050110
  Transmission Date: 20050727
  Serious: Yes (Other)
  Sender: FDA-Public Use
  Company Number: None

PATIENT
  Sex: Female
  Weight: 68.0396 kg

DRUGS (4)
  1. ESTRADIOL [Suspect]
     Indication: MENOPAUSAL SYMPTOMS
     Dosage: 1 MG PO QD
     Route: 048
     Dates: start: 20001019, end: 20001024
  2. DILANTIN [Concomitant]
  3. TEGRETOL [Concomitant]
  4. MYSOLIN [Concomitant]

REACTIONS (2)
  - MENOPAUSAL SYMPTOMS [None]
  - PHARMACEUTICAL PRODUCT COMPLAINT [None]
